FAERS Safety Report 6327744-9 (Version None)
Quarter: 2009Q3

REPORT INFORMATION
  Report Type: 
  Country: None (occurrence: None)
  Receive Date: 20090824
  Receipt Date: 20090522
  Transmission Date: 20100115
  Serious: No
  Sender: FDA-Public Use
  Company Number: 2009S1009126

PATIENT
  Age: 65 Year
  Sex: Female

DRUGS (8)
  1. ZOLPIDEM [Suspect]
     Dosage: ORAL
     Route: 048
     Dates: start: 20070101
  2. SERZONE (CON.) [Concomitant]
  3. LEVOXYL (CON.) [Concomitant]
  4. CATAFLAM /00372302/ (CON.) [Concomitant]
  5. LOVASTATIN (CON.) [Concomitant]
  6. NORVASC (CON.) [Concomitant]
  7. PRILOSEC (CON.) [Concomitant]
  8. DIOVAN (CON.) [Concomitant]

REACTIONS (5)
  - ANXIETY [None]
  - DRUG EFFECT DECREASED [None]
  - ECONOMIC PROBLEM [None]
  - MIDDLE INSOMNIA [None]
  - POLYDIPSIA [None]
